FAERS Safety Report 25467075 (Version 2)
Quarter: 2025Q3

REPORT INFORMATION
  Report Type: Spontaneous
  Country: CA (occurrence: CA)
  Receive Date: 20250623
  Receipt Date: 20250819
  Transmission Date: 20251021
  Serious: Yes (Other)
  Sender: TAKEDA
  Company Number: CA-TAKEDA-2025TUS056675

PATIENT
  Age: 84 Year
  Sex: Female
  Weight: 55 kg

DRUGS (2)
  1. GAMMAGARD LIQUID [Suspect]
     Active Substance: HUMAN IMMUNOGLOBULIN G
     Indication: Hypogammaglobulinaemia
     Dosage: 10 GRAM, QD
     Dates: start: 20250205, end: 20250205
  2. LINVOSELTAMAB [Concomitant]
     Active Substance: LINVOSELTAMAB

REACTIONS (7)
  - Chills [Recovered/Resolved]
  - Dyspnoea [Recovered/Resolved]
  - Hypotension [Recovered/Resolved]
  - Hypoxia [Recovered/Resolved]
  - Nausea [Recovered/Resolved]
  - Vomiting [Recovered/Resolved]
  - Wheezing [Recovered/Resolved]

NARRATIVE: CASE EVENT DATE: 20250205
